FAERS Safety Report 9384094 (Version 2)
Quarter: 2013Q3

REPORT INFORMATION
  Report Type: Spontaneous
  Country: US (occurrence: US)
  Receive Date: 20130705
  Receipt Date: 20130801
  Transmission Date: 20140515
  Serious: Yes (Life-Threatening, Other)
  Sender: FDA-Public Use
  Company Number: US-009507513-1307USA000338

PATIENT
  Age: 61 Year
  Sex: Female

DRUGS (4)
  1. JANUVIA [Suspect]
     Indication: TYPE 2 DIABETES MELLITUS
     Dosage: 100 MG, QD
     Route: 048
     Dates: start: 201006
  2. CRESTOR [Concomitant]
     Dosage: UNK
  3. PRINIVIL [Concomitant]
     Dosage: 10/12.5
     Route: 048
  4. METFORMIN [Concomitant]
     Dosage: 500 MG, BID

REACTIONS (2)
  - Pancreatic carcinoma [Unknown]
  - Blood glucose abnormal [Unknown]
